FAERS Safety Report 16243269 (Version 1)
Quarter: 2019Q2

REPORT INFORMATION
  Report Type: Spontaneous
  Country: DK (occurrence: DK)
  Receive Date: 20190426
  Receipt Date: 20190426
  Transmission Date: 20190711
  Serious: Yes (Death, Hospitalization)
  Sender: FDA-Public Use
  Company Number: DK-PFIZER INC-2019175631

PATIENT
  Age: 88 Year
  Sex: Female

DRUGS (16)
  1. AMLODIPIN [Interacting]
     Active Substance: AMLODIPINE BESYLATE
     Indication: HYPERTENSION
     Dosage: 5 MG, 1X/DAY
     Route: 048
     Dates: start: 2014
  2. MACROGOL [Concomitant]
     Active Substance: POLYETHYLENE GLYCOLS
     Indication: CONSTIPATION
     Dosage: 1 DF{ASNECESSARY
     Route: 048
     Dates: start: 20190207
  3. APIXABAN [Concomitant]
     Active Substance: APIXABAN
     Indication: THROMBOSIS PROPHYLAXIS
     Dosage: 2,5MG
     Route: 048
     Dates: start: 20181004
  4. SIMVASTATIN SANDOZ [Interacting]
     Active Substance: SIMVASTATIN
     Indication: HYPERCHOLESTEROLAEMIA
     Dosage: STYRKE: 40 MG
     Route: 048
     Dates: start: 20140318, end: 20190307
  5. ALFACALCIDOL [Concomitant]
     Active Substance: ALFACALCIDOL
     Indication: CALCIUM METABOLISM DISORDER
     Dosage: DOSIS: 1 KAPSEL TIRSDAG, TORSDAG OG L?RDAG. STYRKE: 0,25MIKROGRAM
     Route: 048
     Dates: start: 20181004
  6. COLECALCIFEROL [Concomitant]
     Active Substance: CHOLECALCIFEROL
     Indication: SUPPLEMENTATION THERAPY
     Dosage: 35 MIKROGRAM
     Route: 048
     Dates: start: 20190217
  7. ZOPICLONE [Concomitant]
     Active Substance: ZOPICLONE
     Indication: INSOMNIA
     Dosage: 3,75MG
     Route: 048
     Dates: start: 20181003
  8. LACTULOSE. [Concomitant]
     Active Substance: LACTULOSE
     Indication: CONSTIPATION
     Dosage: : 660MG/ML
     Route: 048
     Dates: start: 20190208
  9. TRAMADOL. [Concomitant]
     Active Substance: TRAMADOL
     Indication: PAIN
     Dosage: 1 IF NEEDED. STRENGTH: 50MG
     Route: 048
     Dates: start: 20181003
  10. PARACETAMOL [Concomitant]
     Active Substance: ACETAMINOPHEN
     Indication: PAIN
     Dosage: 500MG
     Route: 048
     Dates: start: 20171128
  11. CLARITHROMYCIN. [Interacting]
     Active Substance: CLARITHROMYCIN
     Indication: ERYSIPELAS
     Dosage: 500 MG, 1X/DAY
     Route: 048
     Dates: start: 20190213
  12. CLARITHROMYCIN. [Interacting]
     Active Substance: CLARITHROMYCIN
     Dosage: 250 MG, UNK
     Route: 048
     Dates: start: 20190220
  13. POTASSIUM CHLORIDE. [Concomitant]
     Active Substance: POTASSIUM CHLORIDE
     Indication: MINERAL SUPPLEMENTATION
     Dosage: 750MG
     Route: 048
     Dates: start: 20190221
  14. FUROSEMIDE. [Concomitant]
     Active Substance: FUROSEMIDE
     Indication: DIURETIC THERAPY
     Dosage: STYRKE: 40MG
     Route: 048
     Dates: start: 20190217
  15. CORDARONE [Suspect]
     Active Substance: AMIODARONE HYDROCHLORIDE
     Indication: HEART RATE IRREGULAR
     Dosage: 200 MG, 1X/DAY
     Route: 048
     Dates: start: 20140406
  16. TERBINAFINE. [Concomitant]
     Active Substance: TERBINAFINE
     Indication: FUNGAL SKIN INFECTION
     Dosage: 1 DF, QD
     Route: 003
     Dates: start: 20190222

REACTIONS (4)
  - Myoglobin blood increased [Fatal]
  - Rhabdomyolysis [Fatal]
  - Drug interaction [Fatal]
  - Blood creatine phosphokinase increased [Fatal]

NARRATIVE: CASE EVENT DATE: 2019
